FAERS Safety Report 23729970 (Version 1)
Quarter: 2024Q2

REPORT INFORMATION
  Report Type: Spontaneous
  Country: CA (occurrence: CA)
  Receive Date: 20240411
  Receipt Date: 20240411
  Transmission Date: 20240715
  Serious: Yes (Other)
  Sender: FDA-Public Use
  Company Number: CA-TEVA-VS-3180361

PATIENT
  Sex: Female

DRUGS (3)
  1. CLONAZEPAM [Suspect]
     Active Substance: CLONAZEPAM
     Indication: Product used for unknown indication
     Route: 048
  2. CLONAZEPAM [Suspect]
     Active Substance: CLONAZEPAM
     Indication: Product used for unknown indication
     Route: 048
  3. CLONAZEPAM [Suspect]
     Active Substance: CLONAZEPAM
     Indication: Product used for unknown indication
     Route: 048

REACTIONS (10)
  - Abdominal pain upper [Unknown]
  - Insomnia [Unknown]
  - Muscle spasms [Unknown]
  - Pain [Unknown]
  - Diaphragmalgia [Unknown]
  - Palpitations [Unknown]
  - Tremor [Unknown]
  - Feeling abnormal [Unknown]
  - Blood pressure increased [Unknown]
  - Drug ineffective [Unknown]
